FAERS Safety Report 4927669-7 (Version None)
Quarter: 2006Q1

REPORT INFORMATION
  Report Type: 
  Country: None (occurrence: None)
  Receive Date: 20060228
  Receipt Date: 20050112
  Transmission Date: 20060701
  Serious: Yes (Hospitalization, Disabling)
  Sender: FDA-Public Use
  Company Number: US-MERCK-0501USA02384

PATIENT
  Age: 45 Year
  Sex: Male
  Weight: 150 kg

DRUGS (1)
  1. VIOXX [Suspect]
     Indication: ARTHRITIS
     Route: 048
     Dates: start: 19990101, end: 20020101

REACTIONS (20)
  - ABASIA [None]
  - AKINESIA [None]
  - APPENDICITIS [None]
  - BLOOD PRESSURE SYSTOLIC INCREASED [None]
  - BRAIN STEM INFARCTION [None]
  - CARDIOMEGALY [None]
  - CEREBROVASCULAR ACCIDENT [None]
  - CHEST PAIN [None]
  - CORONARY ARTERY STENOSIS [None]
  - FLUID OVERLOAD [None]
  - HYPOKALAEMIA [None]
  - IMPAIRED DRIVING ABILITY [None]
  - LUMBAR RADICULOPATHY [None]
  - MITRAL VALVE INCOMPETENCE [None]
  - MYOCARDIAL ISCHAEMIA [None]
  - NON-CARDIAC CHEST PAIN [None]
  - PERICARDIAL EFFUSION [None]
  - ROAD TRAFFIC ACCIDENT [None]
  - SKIN INFECTION [None]
  - VENTRICULAR DYSFUNCTION [None]
